FAERS Safety Report 22610431 (Version 1)
Quarter: 2023Q2

REPORT INFORMATION
  Report Type: Spontaneous
  Country: US (occurrence: None)
  Receive Date: 20230615
  Receipt Date: 20230615
  Transmission Date: 20230721
  Serious: No
  Sender: FDA-Public Use
  Company Number: None

PATIENT
  Sex: Female

DRUGS (9)
  1. ENBREL [Suspect]
     Active Substance: ETANERCEPT
     Indication: Rheumatoid arthritis
     Dosage: FREQUENCY : WEEKLY;?
     Route: 058
     Dates: start: 202207, end: 202305
  2. AMLODIPINE [Concomitant]
     Active Substance: AMLODIPINE BESYLATE
  3. HYDRALAZINE [Concomitant]
     Active Substance: HYDRALAZINE HYDROCHLORIDE
     Dosage: FREQUENCY : TWICE A DAY;?
  4. GILPIZIDE [Concomitant]
     Dosage: FREQUENCY : DAILY;?
  5. SULFASALAZINE [Concomitant]
     Active Substance: SULFASALAZINE
     Dosage: FREQUENCY : TWICE A DAY;?
     Route: 048
  6. LEVOTHYROXINE [Concomitant]
     Active Substance: LEVOTHYROXINE
     Dosage: FREQUENCY : DAILY;?
  7. HYDROXYCHOROCUINE [Concomitant]
     Dosage: FREQUENCY : DAILY;?
  8. FUROSEMIDE [Concomitant]
     Active Substance: FUROSEMIDE
     Dosage: FREQUENCY : DAILY;?
  9. HYDROCHLOROTHIAZIDE [Concomitant]
     Active Substance: HYDROCHLOROTHIAZIDE
     Dosage: FREQUENCY : DAILY;?

REACTIONS (2)
  - Drug ineffective [None]
  - Therapy cessation [None]
